FAERS Safety Report 23845115 (Version 1)
Quarter: 2024Q2

REPORT INFORMATION
  Report Type: Spontaneous
  Country: ES (occurrence: ES)
  Receive Date: 20240511
  Receipt Date: 20240511
  Transmission Date: 20240716
  Serious: Yes (Other)
  Sender: FDA-Public Use
  Company Number: None

PATIENT
  Age: 38 Year
  Sex: Male

DRUGS (1)
  1. FILGRASTIM [Suspect]
     Active Substance: FILGRASTIM
     Indication: Stem cell donor
     Dosage: FILGRASTIM (7089A)
     Route: 058
     Dates: start: 20240119, end: 20240122

REACTIONS (2)
  - Spermatozoa progressive motility abnormal [Recovered/Resolved]
  - Spermatozoa morphology abnormal [Recovered/Resolved]

NARRATIVE: CASE EVENT DATE: 20240201
